FAERS Safety Report 7821000-5 (Version None)
Quarter: 2011Q4

REPORT INFORMATION
  Report Type: 
  Country: None (occurrence: None)
  Receive Date: 20111018
  Receipt Date: 20110427
  Transmission Date: 20120403
  Serious: No
  Sender: FDA-Public Use
  Company Number: US-ASTRAZENECA-2010SE51932

PATIENT
  Age: 62 Year
  Sex: Female

DRUGS (2)
  1. SYMBICORT [Suspect]
     Indication: ASTHMA
     Dosage: 160/4.5 MCG UNKNOWN
     Route: 055
  2. SYMBICORT [Suspect]
     Dosage: 80/4.5 MCG UNKNOWN
     Route: 055

REACTIONS (5)
  - HEART RATE INCREASED [None]
  - DRUG EFFECT INCREASED [None]
  - SKIN BURNING SENSATION [None]
  - CHEST DISCOMFORT [None]
  - MULTIPLE ALLERGIES [None]
